FAERS Safety Report 24394058 (Version 1)
Quarter: 2024Q4

REPORT INFORMATION
  Report Type: Spontaneous
  Country: PT (occurrence: PT)
  Receive Date: 20241003
  Receipt Date: 20241003
  Transmission Date: 20250115
  Serious: Yes (Death, Other)
  Sender: MERCK
  Company Number: PT-009507513-2410PRT000330

PATIENT
  Age: 42 Year
  Sex: Female

DRUGS (1)
  1. KEYTRUDA [Suspect]
     Active Substance: PEMBROLIZUMAB
     Indication: Thymoma

REACTIONS (6)
  - Cardiac failure [Fatal]
  - Sepsis [Fatal]
  - Malignant neoplasm progression [Unknown]
  - Hepatotoxicity [Unknown]
  - Therapy partial responder [Unknown]
  - Product use in unapproved indication [Unknown]
